FAERS Safety Report 4582742-0 (Version None)
Quarter: 2005Q1

REPORT INFORMATION
  Report Type: 
  Country: None (occurrence: None)
  Receive Date: 20050127
  Receipt Date: 20040413
  Transmission Date: 20050727
  Serious: Yes (Disabling)
  Sender: FDA-Public Use
  Company Number: 04-04-0541

PATIENT
  Age: 68 Year
  Sex: Female

DRUGS (3)
  1. HYDROCHLOROTHIAZIDE [Suspect]
     Indication: HYPERTENSION
     Dosage: 12.5MG QD ORAL
     Route: 048
     Dates: start: 19990616
  2. ISOPTIN SR [Concomitant]
  3. MAVIK [Concomitant]

REACTIONS (1)
  - ABDOMINAL PAIN LOWER [None]
